FAERS Safety Report 11146301 (Version 1)
Quarter: 2015Q2

REPORT INFORMATION
  Report Type: Spontaneous
  Country: FR (occurrence: FR)
  Receive Date: 20150528
  Receipt Date: 20150528
  Transmission Date: 20150821
  Serious: Yes (Hospitalization)
  Sender: FDA-Public Use
  Company Number: FR-009507513-1505FRA009167

PATIENT
  Age: 31 Year
  Sex: Female
  Weight: 10.8 kg

DRUGS (5)
  1. CELESTENE [Suspect]
     Active Substance: BETAMETHASONE
     Dosage: UNK
     Route: 048
     Dates: start: 20150310, end: 20150312
  2. TEGRETOL [Suspect]
     Active Substance: CARBAMAZEPINE
     Dosage: 80 MG, QD
     Route: 048
     Dates: start: 20150217, end: 20150312
  3. AMOXICILLIN. [Suspect]
     Active Substance: AMOXICILLIN
     Dosage: UNK
     Route: 048
     Dates: start: 20150310, end: 20150312
  4. TEGRETOL [Suspect]
     Active Substance: CARBAMAZEPINE
     Indication: PARTIAL SEIZURES
     Dosage: 40 MG, UNK
     Route: 048
     Dates: start: 20150209, end: 20150217
  5. DEPAKINE [Suspect]
     Active Substance: VALPROATE SODIUM
     Indication: PARTIAL SEIZURES
     Dosage: 30 MG, QD
     Route: 048
     Dates: start: 20150313, end: 20150316

REACTIONS (4)
  - Generalised oedema [Recovered/Resolved]
  - Hepatocellular injury [Recovered/Resolved with Sequelae]
  - Drug reaction with eosinophilia and systemic symptoms [Recovering/Resolving]
  - Skin exfoliation [Recovered/Resolved]

NARRATIVE: CASE EVENT DATE: 20150310
